FAERS Safety Report 19120658 (Version 1)
Quarter: 2021Q2

REPORT INFORMATION
  Report Type: Spontaneous
  Country: US (occurrence: US)
  Receive Date: 20210410
  Receipt Date: 20210410
  Transmission Date: 20210717
  Serious: Yes (Life-Threatening, Hospitalization, Disabling)
  Sender: FDA-Public Use
  Company Number: None

PATIENT
  Age: 34 Year
  Sex: Female
  Weight: 48.6 kg

DRUGS (16)
  1. VIT. B2/K3 [Concomitant]
  2. RED ROOT [Concomitant]
  3. BOTOX [Suspect]
     Active Substance: ONABOTULINUMTOXINA
     Indication: SKIN WRINKLING
     Dosage: QUANTITY:33 UNITS;OTHER FREQUENCY:ONCE;?
     Route: 058
     Dates: start: 20200620, end: 20200620
  4. QUERCITIN [Concomitant]
  5. VITAMIN C [Concomitant]
     Active Substance: ASCORBIC ACID
  6. AMERICAN GINSING [Concomitant]
  7. JAPANESE KNOTWEED [Concomitant]
  8. SYNTHETIC THYROID MEDICATION [Concomitant]
  9. ASWAGANDA [Concomitant]
  10. CORDYCEPT [Concomitant]
  11. MILK THISTLE [Concomitant]
     Active Substance: DIETARY SUPPLEMENT\HERBALS\MILK THISTLE
  12. CHINESE SKULLCAP [Concomitant]
  13. CATS CLAW [Concomitant]
  14. ANTIBIOTIC (DOSYCYCLINE) [Concomitant]
  15. SODIUM CHROMALYN [Concomitant]
  16. SELENIUM [Concomitant]
     Active Substance: SELENIUM

REACTIONS (11)
  - Lyme disease [None]
  - Panic attack [None]
  - Tongue disorder [None]
  - Speech disorder [None]
  - Babesiosis [None]
  - Muscle disorder [None]
  - Anxiety [None]
  - Dystonia [None]
  - Hypersensitivity [None]
  - Product complaint [None]
  - Paraesthesia [None]

NARRATIVE: CASE EVENT DATE: 20200620
